FAERS Safety Report 10281789 (Version 1)
Quarter: 2014Q3

REPORT INFORMATION
  Report Type: Report from Study
  Country: BR (occurrence: BR)
  Receive Date: 20140707
  Receipt Date: 20140707
  Transmission Date: 20150326
  Serious: Yes (Death, Hospitalization, Other)
  Sender: FDA-Public Use
  Company Number: PHHY2014BR083327

PATIENT
  Sex: Male
  Weight: 53 kg

DRUGS (6)
  1. SERTRALINE [Concomitant]
     Active Substance: SERTRALINE HYDROCHLORIDE
     Dosage: UNK UKN, UNK
  2. ALOIS [Concomitant]
     Active Substance: MEMANTINE
     Dosage: UNK UKN, UNK
  3. AMOXICILLIN. [Concomitant]
     Active Substance: AMOXICILLIN
     Indication: INFECTION PROPHYLAXIS
     Dosage: 500 MG, UNK
     Dates: start: 201008
  4. DRUG THERAPY NOS [Concomitant]
     Active Substance: UNSPECIFIED INGREDIENT
     Dosage: UNK UKN, UNK
  5. EXELON [Suspect]
     Active Substance: RIVASTIGMINE TARTRATE
     Indication: DEMENTIA ALZHEIMER^S TYPE
     Dosage: 1 DF, DAILY
     Route: 048
  6. EXELON [Suspect]
     Active Substance: RIVASTIGMINE TARTRATE
     Dosage: 1 DF, DAILY
     Route: 048

REACTIONS (7)
  - Head injury [Unknown]
  - Pneumonia [Fatal]
  - Fall [Unknown]
  - Respiratory tract infection [Unknown]
  - Disease progression [Unknown]
  - Cardiac disorder [Unknown]
  - Renal disorder [Unknown]
